FAERS Safety Report 4378827-4 (Version None)
Quarter: 2004Q2

REPORT INFORMATION
  Report Type: 
  Country: None (occurrence: None)
  Receive Date: 20040610
  Receipt Date: 20040601
  Transmission Date: 20050107
  Serious: Yes (Hospitalization)
  Sender: FDA-Public Use
  Company Number: DE-JNJFOC-20040600409

PATIENT
  Age: 46 Year
  Sex: Female
  Weight: 61 kg

DRUGS (5)
  1. REMICADE (INFLIXIMAB, RECOMBINANT) LYOPHILIZED POWDER [Suspect]
     Indication: ANKYLOSING SPONDYLITIS
     Dosage: 292.5 MG, 1 IN 6 WEEK, INTRAVENOUS
     Route: 042
     Dates: start: 20001101
  2. OSSOFORTIN (OSSOFORTIN) TABLETS [Concomitant]
  3. CYTOTEC (MISOPROSTOL) TABLETS [Concomitant]
  4. VOLTAREN RESINAT (DICLOFENAC SODIUM) [Concomitant]
  5. CORNEREGEL EYE DROPS (DEXPANTHENOL) [Concomitant]

REACTIONS (1)
  - HOSPITALISATION [None]
